FAERS Safety Report 4768243-5 (Version None)
Quarter: 2005Q3

REPORT INFORMATION
  Report Type: 
  Country: None (occurrence: None)
  Receive Date: 20050912
  Receipt Date: 20050829
  Transmission Date: 20060218
  Serious: Yes (Hospitalization)
  Sender: FDA-Public Use
  Company Number: WAES 0507USA04355

PATIENT
  Age: 71 Year
  Sex: Male

DRUGS (3)
  1. COZAAR [Suspect]
     Indication: HYPERTENSION
     Dosage: 50 MG/DAILY, PO
     Route: 048
     Dates: start: 20011126, end: 20050228
  2. ASPIRIN [Concomitant]
  3. NORVASC [Concomitant]

REACTIONS (1)
  - NEPHROTIC SYNDROME [None]
